FAERS Safety Report 4554817-3 (Version None)
Quarter: 2004Q4

REPORT INFORMATION
  Report Type: 
  Country: None (occurrence: None)
  Receive Date: 20041227
  Receipt Date: 20040714
  Transmission Date: 20050328
  Serious: Yes (Life-Threatening, Hospitalization)
  Sender: FDA-Public Use
  Company Number: 2004-0007217

PATIENT
  Age: 49 Year
  Sex: Male
  Weight: 105.2345 kg

DRUGS (12)
  1. VIREAD [Suspect]
     Indication: URTICARIA
     Dosage: 300 MG, 1 IN 1 D, ORAL
     Route: 048
     Dates: start: 20030201, end: 20040628
  2. VIDEX EC [Suspect]
     Indication: URTICARIA
     Dates: start: 20020101, end: 20040628
  3. KAYEXALATE [Suspect]
     Indication: RENAL FAILURE ACUTE
     Dates: start: 20040601, end: 20040601
  4. NORVIR [Concomitant]
  5. AGENERASE [Concomitant]
  6. CRIXIVAN [Concomitant]
  7. ZIAGEN [Concomitant]
  8. LEXIVA [Concomitant]
  9. ADALAT [Concomitant]
  10. ALDACTONE [Concomitant]
  11. GLUCOPHAGE [Concomitant]
  12. GLYBURIDE [Concomitant]

REACTIONS (2)
  - PANCREATITIS [None]
  - RENAL FAILURE ACUTE [None]
